FAERS Safety Report 8157456-0 (Version None)
Quarter: 2012Q1

REPORT INFORMATION
  Report Type: 
  Country: None (occurrence: None)
  Receive Date: 20120217
  Receipt Date: 20120213
  Transmission Date: 20120608
  Serious: Yes (Hospitalization)
  Sender: FDA-Public Use
  Company Number: 2012SP005211

PATIENT
  Age: 53 Year
  Sex: Female

DRUGS (3)
  1. TRILEPTAL [Concomitant]
  2. LYRICA [Concomitant]
  3. TEMODAR [Suspect]
     Indication: BRAIN NEOPLASM MALIGNANT
     Dosage: 140 MG; QD; PO
     Route: 048
     Dates: start: 20120108

REACTIONS (4)
  - VOMITING [None]
  - CHILLS [None]
  - INFLUENZA LIKE ILLNESS [None]
  - NAUSEA [None]
